FAERS Safety Report 8811862 (Version 1)
Quarter: 2012Q4

REPORT INFORMATION
  Report Type: 
  Country: US (occurrence: US)
  Receive Date: 20120927
  Receipt Date: 20120927
  Transmission Date: 20130627
  Serious: No
  Sender: FDA-Public Use
  Company Number: US-MUTUAL PHARMACEUTICAL COMPANY, INC.-SFTM20110002

PATIENT
  Age: 37 Year
  Sex: Female
  Weight: 113.5 kg

DRUGS (2)
  1. SULFAMETHOXAZOLE AND TRIMETHOPRIM [Suspect]
     Indication: ACNE
     Route: 048
     Dates: start: 20110803, end: 20110808
  2. SULFAMETHOXAZOLE AND TRIMETHOPRIM [Suspect]
     Indication: INFECTION MRSA

REACTIONS (3)
  - Pyrexia [Recovered/Resolved]
  - Fatigue [Recovered/Resolved]
  - Sinus congestion [Recovered/Resolved]
